FAERS Safety Report 6179311-8 (Version None)
Quarter: 2009Q2

REPORT INFORMATION
  Report Type: 
  Country: None (occurrence: None)
  Receive Date: 20090430
  Receipt Date: 20090424
  Transmission Date: 20091009
  Serious: Yes (Other)
  Sender: FDA-Public Use
  Company Number: 2009SP006836

PATIENT
  Age: 33 Year
  Sex: Male

DRUGS (4)
  1. PEG-INTRON [Suspect]
     Indication: HEPATITIS C
     Dosage: 180 MCG; QW
     Dates: start: 20090213
  2. REBETOL [Suspect]
     Indication: HEPATITIS C
     Dosage: 1000 MCG; QD; PO
     Route: 048
     Dates: start: 20090213
  3. ADDERALL 10 [Concomitant]
  4. ZANTAC [Concomitant]

REACTIONS (8)
  - DECREASED APPETITE [None]
  - DIARRHOEA [None]
  - DIZZINESS [None]
  - HAEMATEMESIS [None]
  - HAEMATOCHEZIA [None]
  - INJECTION SITE ERYTHEMA [None]
  - NAUSEA [None]
  - SYNCOPE [None]
